FAERS Safety Report 9831175 (Version 2)
Quarter: 2015Q1

REPORT INFORMATION
  Report Type: Report from Study
  Country: US (occurrence: US)
  Receive Date: 20140121
  Receipt Date: 20150317
  Transmission Date: 20150721
  Serious: Yes (Death)
  Sender: FDA-Public Use
  Company Number: US-ROCHE-1334058

PATIENT
  Age: 55 Year
  Sex: Female

DRUGS (11)
  1. AVASTIN [Suspect]
     Active Substance: BEVACIZUMAB
     Route: 042
     Dates: start: 20120104
  2. AVASTIN [Suspect]
     Active Substance: BEVACIZUMAB
     Indication: COLON CANCER
     Dosage: 285 MG PLACED IN 100ML SODIUM CHLORIDE 0.9%
     Route: 042
     Dates: start: 20111007
  3. XELODA [Suspect]
     Active Substance: CAPECITABINE
     Indication: COLON CANCER
     Route: 065
  4. TYLENOL [Concomitant]
     Active Substance: ACETAMINOPHEN
     Dosage: 16 DEC 2011
     Route: 048
     Dates: start: 20111007
  5. AVASTIN [Suspect]
     Active Substance: BEVACIZUMAB
     Route: 042
  6. DIPHENHYDRAMINE [Concomitant]
     Active Substance: DIPHENHYDRAMINE
     Route: 042
     Dates: start: 20120104
  7. AVASTIN [Suspect]
     Active Substance: BEVACIZUMAB
     Dosage: DATE OF DOSE: 02/DEC/2011
     Route: 042
     Dates: start: 20111118
  8. SANCUSO [Suspect]
     Active Substance: GRANISETRON
     Indication: COLON CANCER
     Dosage: PER 24 HOURS
     Route: 062
     Dates: start: 20111216
  9. POTASSIUM CHLORIDE. [Concomitant]
     Active Substance: POTASSIUM CHLORIDE
     Route: 048
     Dates: start: 20111216
  10. AVASTIN [Suspect]
     Active Substance: BEVACIZUMAB
     Dosage: DATE OF DOSE RECEIVED: 04/NOV/2011
     Route: 042
     Dates: start: 20111021
  11. CATAPRES [Concomitant]
     Active Substance: CLONIDINE HYDROCHLORIDE
     Route: 048
     Dates: start: 20111216

REACTIONS (1)
  - Death [Fatal]

NARRATIVE: CASE EVENT DATE: 20120424
